FAERS Safety Report 5308971-6 (Version None)
Quarter: 2007Q2

REPORT INFORMATION
  Report Type: 
  Country: None (occurrence: None)
  Receive Date: 20070426
  Receipt Date: 20070420
  Transmission Date: 20071010
  Serious: Yes (Other)
  Sender: FDA-Public Use
  Company Number: US-BOEHRINGER INGELHEIM PHARMACEUTICALS, INC.-2007-BP-05597PF

PATIENT
  Sex: Female
  Weight: 74 kg

DRUGS (10)
  1. SPIRIVA [Suspect]
     Indication: DYSPNOEA
     Route: 055
     Dates: start: 20070413, end: 20070418
  2. CHANTIX [Concomitant]
     Indication: SMOKING CESSATION THERAPY
     Dates: start: 20070416
  3. DIOVAN [Concomitant]
  4. NEXIUM [Concomitant]
  5. VITAMIN B COMPLEX WITH C [Concomitant]
  6. VITAMIN E [Concomitant]
  7. ASPIRIN [Concomitant]
  8. PROMETRIUM [Concomitant]
  9. VIVELLE-DOT [Concomitant]
  10. ZETIA [Concomitant]

REACTIONS (4)
  - BACK PAIN [None]
  - COUGH [None]
  - GALLBLADDER DISORDER [None]
  - HEPATOMEGALY [None]
